FAERS Safety Report 23888206 (Version 2)
Quarter: 2024Q2

REPORT INFORMATION
  Report Type: Spontaneous
  Country: ES (occurrence: ES)
  Receive Date: 20240523
  Receipt Date: 20240526
  Transmission Date: 20240716
  Serious: Yes (Other)
  Sender: FDA-Public Use
  Company Number: None

PATIENT
  Age: 35 Year
  Sex: Male
  Weight: 71 kg

DRUGS (2)
  1. RILPIVIRINE [Suspect]
     Active Substance: RILPIVIRINE
     Indication: Asymptomatic HIV infection
     Route: 030
     Dates: start: 20230327, end: 20240506
  2. CABOTEGRAVIR [Suspect]
     Active Substance: CABOTEGRAVIR
     Indication: Asymptomatic HIV infection
     Dosage: UNK
     Route: 030
     Dates: start: 20230327, end: 20240506

REACTIONS (7)
  - Headache [Recovered/Resolved]
  - Back pain [Recovered/Resolved]
  - Hypotension [Recovered/Resolved]
  - Dizziness [Recovered/Resolved]
  - Injection site erythema [Recovered/Resolved]
  - Nausea [Recovered/Resolved]
  - Facial pain [Recovered/Resolved]

NARRATIVE: CASE EVENT DATE: 20240409
